FAERS Safety Report 7114460-9 (Version None)
Quarter: 2010Q4

REPORT INFORMATION
  Report Type: 
  Country: None (occurrence: None)
  Receive Date: 20101119
  Receipt Date: 20101111
  Transmission Date: 20110411
  Serious: Yes (Disabling)
  Sender: FDA-Public Use
  Company Number: GB-ALLERGAN-1014648US

PATIENT
  Sex: Female

DRUGS (1)
  1. BIMATOPROST [Suspect]
     Indication: DEVELOPMENTAL GLAUCOMA
     Dosage: UNK
     Route: 047
     Dates: start: 20070607, end: 20091124

REACTIONS (2)
  - CHOROIDAL EFFUSION [None]
  - RETINAL DETACHMENT [None]
